FAERS Safety Report 5475143-4 (Version None)
Quarter: 2007Q4

REPORT INFORMATION
  Report Type: 
  Country: None (occurrence: None)
  Receive Date: 20071002
  Receipt Date: 20070920
  Transmission Date: 20080405
  Serious: Yes (Other)
  Sender: FDA-Public Use
  Company Number: US-PFIZER INC-2007037393

PATIENT
  Sex: Male
  Weight: 147 kg

DRUGS (4)
  1. SUTENT [Suspect]
     Indication: RENAL CANCER METASTATIC
     Dosage: DAILY DOSE:50MG-FREQ:DAILY
     Route: 048
  2. SUTENT [Suspect]
     Dosage: DAILY DOSE:50MG-FREQ:28 DAYS ON /14 DAYS OFF
     Route: 048
     Dates: start: 20061016, end: 20070309
  3. SUTENT [Suspect]
     Dates: start: 20070625, end: 20070722
  4. SUTENT [Suspect]

REACTIONS (3)
  - IMPAIRED HEALING [None]
  - OPEN WOUND [None]
  - SKIN ULCER [None]
